FAERS Safety Report 6606600-2 (Version None)
Quarter: 2010Q1

REPORT INFORMATION
  Report Type: 
  Country: None (occurrence: None)
  Receive Date: 20100226
  Receipt Date: 20100208
  Transmission Date: 20100710
  Serious: Yes (Other)
  Sender: FDA-Public Use
  Company Number: PHEH2008US03999

PATIENT
  Sex: Male
  Weight: 93.6 kg

DRUGS (16)
  1. ZOMETA [Suspect]
     Indication: MULTIPLE MYELOMA
     Dosage: UNK
     Dates: start: 20030519
  2. LORTAB [Concomitant]
  3. DOXYCYCLINE [Concomitant]
  4. PERIDEX [Concomitant]
  5. CLEOCIN [Concomitant]
  6. K-TAB [Concomitant]
  7. LASIX [Concomitant]
  8. BEXTRA [Concomitant]
  9. INVANZ [Concomitant]
     Dosage: 1000 MG, UNK
     Route: 042
  10. MOBIC [Concomitant]
     Dosage: 7.5 MG, BID
     Route: 048
  11. TRENTAL ^ALBERT-ROUSSEL^ [Concomitant]
     Indication: TRISMUS
  12. PREDNISONE [Concomitant]
     Dosage: 5 MG, UNK
  13. DIAMOX SRC [Concomitant]
     Dosage: 500 MG, UNK
  14. BIAXIN [Concomitant]
     Dosage: 500 MG, UNK
  15. FLOXIN ^DAIICHI^ [Concomitant]
     Dosage: 300 MG, UNK
  16. Z-PAK [Concomitant]

REACTIONS (49)
  - ABDOMINAL PAIN UPPER [None]
  - ANAEMIA [None]
  - ANXIETY [None]
  - ATELECTASIS [None]
  - BENIGN TUMOUR EXCISION [None]
  - BONE DEBRIDEMENT [None]
  - BONE DISORDER [None]
  - BONE FRAGMENTATION [None]
  - BONE SWELLING [None]
  - CELLULITIS [None]
  - CENTRAL VENOUS CATHETERISATION [None]
  - CHEST PAIN [None]
  - CHOLELITHIASIS [None]
  - DENTAL CARIES [None]
  - DENTAL OPERATION [None]
  - EMOTIONAL DISTRESS [None]
  - EXOSTOSIS [None]
  - FISTULA DISCHARGE [None]
  - HAEMANGIOMA [None]
  - HEADACHE [None]
  - HEPATOMEGALY [None]
  - HYPERBARIC OXYGEN THERAPY [None]
  - INDURATION [None]
  - INFECTION [None]
  - INJURY [None]
  - INTERVERTEBRAL DISC DEGENERATION [None]
  - MASS [None]
  - MOUTH ULCERATION [None]
  - MUSCLE TIGHTNESS [None]
  - OSTEONECROSIS [None]
  - OSTEORADIONECROSIS [None]
  - PAIN [None]
  - PAIN IN JAW [None]
  - PANCREATITIS [None]
  - PAROTITIS [None]
  - PHYSICAL DISABILITY [None]
  - PLASMACYTOMA [None]
  - PURULENT DISCHARGE [None]
  - RADIOTHERAPY [None]
  - RENAL CYST [None]
  - SCAR [None]
  - SINUSITIS [None]
  - SPINAL OSTEOARTHRITIS [None]
  - SURGERY [None]
  - TONGUE INJURY [None]
  - TOOTH ABSCESS [None]
  - TOOTH EXTRACTION [None]
  - TOOTHACHE [None]
  - TRISMUS [None]
